FAERS Safety Report 24189471 (Version 1)
Quarter: 2024Q3

REPORT INFORMATION
  Report Type: Spontaneous
  Country: US (occurrence: None)
  Receive Date: 20240807
  Receipt Date: 20240807
  Transmission Date: 20241017
  Serious: Yes (Hospitalization)
  Sender: Public
  Company Number: None

PATIENT
  Age: 66 Year
  Sex: Male

DRUGS (1)
  1. NUCALA [Suspect]
     Active Substance: MEPOLIZUMAB
     Indication: Polymyositis
     Dosage: OTHER FREQUENCY : EVERY 4 WEEKS ;?

REACTIONS (2)
  - Therapy interrupted [None]
  - Haemorrhagic disorder [None]
